FAERS Safety Report 7030887-8 (Version None)
Quarter: 2010Q4

REPORT INFORMATION
  Report Type: 
  Country: None (occurrence: None)
  Receive Date: 20101006
  Receipt Date: 20100922
  Transmission Date: 20110411
  Serious: Yes (Disabling, Other)
  Sender: FDA-Public Use
  Company Number: GB-BRISTOL-MYERS SQUIBB COMPANY-15134323

PATIENT
  Age: 50 Year
  Sex: Female

DRUGS (14)
  1. PRAVASTATIN SODIUM [Suspect]
  2. LIPITOR [Suspect]
     Indication: HYPERCHOLESTEROLAEMIA
     Dosage: 10MG,INTERRUPTED:DEC04, DOSE INCREASED TO 40MG
     Dates: start: 19981113, end: 20061128
  3. ZOCOR [Suspect]
     Indication: MEMORY IMPAIRMENT
     Dates: start: 20030101
  4. ZOCOR [Suspect]
     Indication: MYALGIA
     Dates: start: 20030101
  5. ZOCOR [Suspect]
     Indication: PAIN IN EXTREMITY
     Dates: start: 20030101
  6. ZOCOR [Suspect]
     Indication: FATIGUE
     Dates: start: 20030101
  7. ZOCOR [Suspect]
     Indication: ENDOSCOPY
     Dates: start: 20030101
  8. CRESTOR [Concomitant]
     Indication: MYALGIA
  9. EVOREL [Concomitant]
     Indication: CHEST PAIN
     Dosage: 2/1 WKS;ESTRADIOL HEMIHYDRATE MICRONISED,NORETHISTERONE ACETATE MICRONISED
  10. EVOREL [Concomitant]
     Indication: ANXIETY
     Dosage: 2/1 WKS;ESTRADIOL HEMIHYDRATE MICRONISED,NORETHISTERONE ACETATE MICRONISED
  11. EVOREL [Concomitant]
     Indication: NAUSEA
     Dosage: 2/1 WKS;ESTRADIOL HEMIHYDRATE MICRONISED,NORETHISTERONE ACETATE MICRONISED
  12. EVOREL [Concomitant]
     Indication: PANIC ATTACK
     Dosage: 2/1 WKS;ESTRADIOL HEMIHYDRATE MICRONISED,NORETHISTERONE ACETATE MICRONISED
  13. EVOREL [Concomitant]
     Indication: FEELING HOT
     Dosage: 2/1 WKS;ESTRADIOL HEMIHYDRATE MICRONISED,NORETHISTERONE ACETATE MICRONISED
  14. LANSOPRAZOLE [Concomitant]
     Indication: DYSPEPSIA
     Dosage: REDUCED TO 15MG,3WEEKS

REACTIONS (10)
  - ARTHRALGIA [None]
  - ASTHENIA [None]
  - FATIGUE [None]
  - HYPERSENSITIVITY [None]
  - MUSCLE ATROPHY [None]
  - MUSCLE INJURY [None]
  - MUSCULOSKELETAL PAIN [None]
  - POST VIRAL FATIGUE SYNDROME [None]
  - RESTLESS LEGS SYNDROME [None]
  - UNEVALUABLE EVENT [None]
